FAERS Safety Report 6758071-3 (Version None)
Quarter: 2010Q2

REPORT INFORMATION
  Report Type: 
  Country: None (occurrence: None)
  Receive Date: 20100602
  Receipt Date: 20100512
  Transmission Date: 20101027
  Serious: Yes (Other)
  Sender: FDA-Public Use
  Company Number: 2010SCPR000693

PATIENT
  Age: 49 Year
  Sex: Female

DRUGS (3)
  1. VALPROIC ACID [Suspect]
     Indication: DRUG USE FOR UNKNOWN INDICATION
     Dosage: 250 MG AM AND 500 MG PM
  2. LORAZEPAM [Concomitant]
  3. CITALOPRAM HYDROBROMIDE [Concomitant]

REACTIONS (7)
  - AGITATION [None]
  - CONFUSIONAL STATE [None]
  - DELUSION [None]
  - DISORIENTATION [None]
  - GAIT DISTURBANCE [None]
  - HALLUCINATIONS, MIXED [None]
  - HYPERAMMONAEMIC ENCEPHALOPATHY [None]
